FAERS Safety Report 9409216 (Version 2)
Quarter: 2013Q3

REPORT INFORMATION
  Report Type: Spontaneous
  Country: GB (occurrence: GB)
  Receive Date: 20130719
  Receipt Date: 20130906
  Transmission Date: 20140515
  Serious: Yes (Hospitalization, Disabling, Other)
  Sender: FDA-Public Use
  Company Number: GB-ACCORD-018559

PATIENT
  Age: 60 Year
  Sex: Female

DRUGS (16)
  1. LETROZOLE [Suspect]
     Indication: BREAST CANCER METASTATIC
     Route: 048
     Dates: start: 20121129, end: 201305
  2. ANASTROZOLE [Suspect]
     Indication: BREAST CANCER METASTATIC
     Route: 048
     Dates: start: 20130520
  3. TRAMADOL [Concomitant]
  4. FERROUS FUMARATE [Concomitant]
  5. CO-DANTHRAMER [Concomitant]
  6. SEVREDOL [Concomitant]
  7. GLICLAZIDE [Concomitant]
  8. OMEPRAZOLE [Concomitant]
  9. CITALOPRAM [Concomitant]
  10. LEVEMIR [Concomitant]
  11. METFORMIN [Concomitant]
  12. LISINOPRIL [Concomitant]
  13. ZOPICLONE [Concomitant]
  14. MEZOLAR MATRIX [Concomitant]
  15. CYCLIZINE [Concomitant]
  16. BUMETANIDE [Concomitant]

REACTIONS (2)
  - Mania [Recovered/Resolved]
  - Psychotic disorder [Recovered/Resolved]
